FAERS Safety Report 9391774 (Version 1)
Quarter: 2013Q3

REPORT INFORMATION
  Report Type: Spontaneous
  Country: US (occurrence: None)
  Receive Date: 20130705
  Receipt Date: 20130705
  Transmission Date: 20140515
  Serious: Yes (Hospitalization, Other)
  Sender: FDA-Public Use
  Company Number: ACO_37118_2013

PATIENT
  Sex: Female

DRUGS (6)
  1. AMPYRA (DALFAMPRIDINE) TABLET, 10MG [Suspect]
     Indication: GAIT DISTURBANCE
     Route: 048
     Dates: start: 2013
  2. ALL OTHER THERAPEUTIC PRODUCTS [Concomitant]
  3. BACLOFEN (BACLOFEN) [Concomitant]
  4. OXYCODONE (OXYCODONE) [Concomitant]
  5. ADDERALL (AMFETAMINE ASPARTATE, AMFETAMINE SULFATE, DEXAMFETAMINE SACCHARATE, DEXAMFETAMINE SULFATE) [Concomitant]
  6. MARIJUANA (MARIJUANA) [Concomitant]

REACTIONS (8)
  - Convulsion [None]
  - Confusional state [None]
  - Anxiety [None]
  - Urinary tract infection [None]
  - Back pain [None]
  - Nausea [None]
  - Vomiting [None]
  - Multiple sclerosis relapse [None]
